FAERS Safety Report 6102672-2 (Version None)
Quarter: 2009Q1

REPORT INFORMATION
  Report Type: 
  Country: None (occurrence: None)
  Receive Date: 20090304
  Receipt Date: 20081212
  Transmission Date: 20090719
  Serious: No
  Sender: FDA-Public Use
  Company Number: A0760187A

PATIENT
  Age: 24 Year
  Sex: Female

DRUGS (2)
  1. REQUIP [Suspect]
     Indication: RESTLESS LEGS SYNDROME
     Dosage: .5MG PER DAY
     Route: 048
     Dates: start: 20081208
  2. DEPO-PROVERA [Concomitant]
     Dates: start: 20081208

REACTIONS (4)
  - CHILLS [None]
  - NAUSEA [None]
  - PAIN [None]
  - PYREXIA [None]
